FAERS Safety Report 19981878 (Version 4)
Quarter: 2021Q4

REPORT INFORMATION
  Report Type: Spontaneous
  Country: JP (occurrence: JP)
  Receive Date: 20211021
  Receipt Date: 20211126
  Transmission Date: 20220304
  Serious: Yes (Death, Other)
  Sender: FDA-Public Use
  Company Number: JP-GLAXOSMITHKLINE-JP2021JPN216799

PATIENT
  Age: 9 Decade
  Sex: Female

DRUGS (3)
  1. SERETIDE [Suspect]
     Active Substance: FLUTICASONE PROPIONATE\SALMETEROL XINAFOATE
     Dosage: UNK
  2. NUCALA [Suspect]
     Active Substance: MEPOLIZUMAB
     Indication: Asthma
     Dosage: 100 MG, ONCE IN 4 WEEKS
     Route: 058
     Dates: start: 2019, end: 202110
  3. NUCALA [Suspect]
     Active Substance: MEPOLIZUMAB
     Indication: Condition aggravated

REACTIONS (3)
  - Pneumonia [Unknown]
  - Pneumonia aspiration [Fatal]
  - Asthma [Recovering/Resolving]
